FAERS Safety Report 11748064 (Version 2)
Quarter: 2015Q4

REPORT INFORMATION
  Report Type: Report from Study
  Country: DE (occurrence: DE)
  Receive Date: 20151117
  Receipt Date: 20151118
  Transmission Date: 20160304
  Serious: Yes (Death, Hospitalization)
  Sender: FDA-Public Use
  Company Number: DE-ABBVIE-15P-062-1498788-00

PATIENT
  Sex: Male

DRUGS (1)
  1. DUODOPA [Suspect]
     Active Substance: CARBIDOPA\LEVODOPA
     Indication: PARKINSON^S DISEASE
     Dosage: MD 8 ML, CRD 4.0 ML/HR, ED 1.5 ML
     Route: 050
     Dates: start: 20120119, end: 20151112

REACTIONS (3)
  - Pneumonia [Not Recovered/Not Resolved]
  - Nephritis [Not Recovered/Not Resolved]
  - General physical health deterioration [Fatal]
